FAERS Safety Report 9607730 (Version 1)
Quarter: 2013Q4

REPORT INFORMATION
  Report Type: Report from Study
  Country: FR (occurrence: FR)
  Receive Date: 20131009
  Receipt Date: 20131009
  Transmission Date: 20140711
  Serious: Yes (Hospitalization)
  Sender: FDA-Public Use
  Company Number: FR-ASTELLAS-2013EU008524

PATIENT
  Age: 51 Year
  Sex: Female

DRUGS (7)
  1. ADVAGRAF [Suspect]
     Indication: IMMUNOSUPPRESSION
     Dosage: 8 MG/DAY, UNKNOWN/D
     Route: 065
     Dates: start: 20130613
  2. ROVALCYTE [Concomitant]
     Indication: ANTIVIRAL PROPHYLAXIS
     Dosage: UNK
     Route: 065
     Dates: start: 20130613
  3. CELLCEPT                           /01275102/ [Concomitant]
     Indication: IMMUNOSUPPRESSION
     Dosage: UNK
     Route: 065
     Dates: start: 20130613
  4. BACTRIM [Concomitant]
     Indication: INFECTION PROPHYLAXIS
     Dosage: UNK
     Route: 065
     Dates: start: 20130613
  5. SOLUPRED                           /00016201/ [Concomitant]
     Indication: IMMUNOSUPPRESSION
     Dosage: UNK
     Route: 065
     Dates: start: 20130613
  6. TEMERIT [Concomitant]
     Indication: HYPERTENSION
     Dosage: UNK
     Route: 065
     Dates: start: 20130613
  7. MAG 2                              /00454301/ [Concomitant]
     Dosage: UNK
     Route: 065
     Dates: start: 20130809

REACTIONS (1)
  - Peripheral artery thrombosis [Recovered/Resolved]
